FAERS Safety Report 20475900 (Version 2)
Quarter: 2022Q2

REPORT INFORMATION
  Report Type: Spontaneous
  Country: US (occurrence: None)
  Receive Date: 20220215
  Receipt Date: 20220624
  Transmission Date: 20220721
  Serious: Yes (Death, Other)
  Sender: FDA-Public Use
  Company Number: 2022A068984

PATIENT
  Age: 32790 Day
  Sex: Male

DRUGS (44)
  1. NEXIUM [Suspect]
     Active Substance: ESOMEPRAZOLE MAGNESIUM
     Indication: Gastrooesophageal reflux disease
     Route: 048
     Dates: start: 2011, end: 2018
  2. NEXIUM [Suspect]
     Active Substance: ESOMEPRAZOLE MAGNESIUM
     Indication: Gastrooesophageal reflux disease
     Route: 048
     Dates: start: 2011, end: 2018
  3. NEXIUM [Suspect]
     Active Substance: ESOMEPRAZOLE MAGNESIUM
     Indication: Gastrooesophageal reflux disease
     Dosage: GENERIC
     Route: 065
     Dates: end: 2018
  4. NEXIUM [Suspect]
     Active Substance: ESOMEPRAZOLE MAGNESIUM
     Indication: Gastrooesophageal reflux disease
     Dosage: GENERIC
     Route: 065
     Dates: end: 2018
  5. PROTONIX [Suspect]
     Active Substance: PANTOPRAZOLE SODIUM
     Indication: Gastrooesophageal reflux disease
     Route: 065
  6. PROTONIX [Suspect]
     Active Substance: PANTOPRAZOLE SODIUM
     Indication: Gastrooesophageal reflux disease
     Route: 065
  7. PROTONIX [Suspect]
     Active Substance: PANTOPRAZOLE SODIUM
     Indication: Gastrooesophageal reflux disease
     Route: 042
     Dates: start: 2018
  8. PROTONIX [Suspect]
     Active Substance: PANTOPRAZOLE SODIUM
     Indication: Gastrooesophageal reflux disease
     Route: 042
     Dates: start: 2018
  9. ATORVASTATIN [Concomitant]
     Active Substance: ATORVASTATIN
     Indication: Hyperlipidaemia
  10. CLOPIDOGREL [Concomitant]
     Active Substance: CLOPIDOGREL BISULFATE
     Indication: Blood viscosity abnormal
  11. CIPROFLOXACIN [Concomitant]
     Active Substance: CIPROFLOXACIN
     Indication: Infection
  12. GENTAMICIN [Concomitant]
     Active Substance: GENTAMICIN
     Indication: Infection
  13. AZITHROMYCIN [Concomitant]
     Active Substance: AZITHROMYCIN
     Indication: Infection
  14. TRAMADOL [Concomitant]
     Active Substance: TRAMADOL
     Indication: Pain
  15. AMOXICILLIN [Concomitant]
     Active Substance: AMOXICILLIN
     Indication: Infection
  16. FAMOTIDINE [Concomitant]
     Active Substance: FAMOTIDINE
  17. RANITIDINE [Concomitant]
     Active Substance: RANITIDINE
  18. PROMETHACIN [Concomitant]
  19. VALTRX [Concomitant]
  20. LYSINE [Concomitant]
     Active Substance: LYSINE
  21. NORCO [Concomitant]
     Active Substance: ACETAMINOPHEN\HYDROCODONE BITARTRATE
  22. ASPIRIN [Concomitant]
     Active Substance: ASPIRIN
  23. DILAUDID [Concomitant]
     Active Substance: HYDROMORPHONE HYDROCHLORIDE
  24. TAMSULOSIN [Concomitant]
     Active Substance: TAMSULOSIN
  25. AMIODARONE [Concomitant]
     Active Substance: AMIODARONE
  26. VENTOLIN HFA [Concomitant]
     Active Substance: ALBUTEROL SULFATE
  27. MIRALAX [Concomitant]
     Active Substance: POLYETHYLENE GLYCOL 3350
  28. NITROGLYCERIN [Concomitant]
     Active Substance: NITROGLYCERIN
  29. AMBIEN [Concomitant]
     Active Substance: ZOLPIDEM TARTRATE
  30. NEOMYCIN-POLYMYXIN [Concomitant]
  31. DEXTROMETHORPHAN-GUAIFENE [Concomitant]
  32. ZYRTEC [Concomitant]
     Active Substance: CETIRIZINE HYDROCHLORIDE
  33. LAMISIL [Concomitant]
     Active Substance: TERBINAFINE HYDROCHLORIDE
  34. POLYETHYLENE GLYCOL [Concomitant]
     Active Substance: POLYETHYLENE GLYCOL
  35. CIPRO [Concomitant]
     Active Substance: CIPROFLOXACIN HYDROCHLORIDE
  36. TRIAMCINOLONE ACETONIDE [Concomitant]
     Active Substance: TRIAMCINOLONE ACETONIDE
  37. DECONEX [Concomitant]
     Active Substance: GUAIFENESIN\PHENYLEPHRINE HYDROCHLORIDE
  38. BETAMETHASONE/KETOROLAC [Concomitant]
  39. VERAMYST [Concomitant]
     Active Substance: FLUTICASONE FUROATE
  40. PENTAZOCINE-ACETAMINOPHEN [Concomitant]
  41. RESTORIL [Concomitant]
     Active Substance: TEMAZEPAM
  42. METHYLPREDNISOLONE [Concomitant]
     Active Substance: METHYLPREDNISOLONE
  43. LINCOMYCIN [Concomitant]
     Active Substance: LINCOMYCIN
  44. VITAMIN B12 [Concomitant]
     Active Substance: CYANOCOBALAMIN

REACTIONS (9)
  - Cardio-respiratory arrest [Fatal]
  - Colorectal cancer stage IV [Fatal]
  - Acute kidney injury [Unknown]
  - Chronic kidney disease [Unknown]
  - Metabolic acidosis [Unknown]
  - Tubulointerstitial nephritis [Unknown]
  - Renal tubular necrosis [Unknown]
  - Hyponatraemia [Unknown]
  - Nephrogenic anaemia [Unknown]

NARRATIVE: CASE EVENT DATE: 20180422
